FAERS Safety Report 25525875 (Version 2)
Quarter: 2025Q3

REPORT INFORMATION
  Report Type: Report from Study
  Country: US (occurrence: US)
  Receive Date: 20250707
  Receipt Date: 20250714
  Transmission Date: 20251020
  Serious: Yes (Other)
  Sender: TG THERAPEUTICS
  Company Number: US-TG THERAPEUTICS INC.-TGT005441

PATIENT

DRUGS (2)
  1. UBLITUXIMAB [Suspect]
     Active Substance: UBLITUXIMAB
     Indication: Secondary progressive multiple sclerosis
     Route: 042
     Dates: start: 20250529, end: 20250529
  2. DOXYCYCLINE HYCLATE [Concomitant]
     Active Substance: DOXYCYCLINE HYCLATE
     Indication: Paronychia
     Dosage: 100 MILLIGRAM, BID
     Route: 048
     Dates: start: 20250609, end: 20250616

REACTIONS (2)
  - Diabetic foot [Recovered/Resolved]
  - Osteomyelitis [Recovered/Resolved]
